FAERS Safety Report 16335324 (Version 2)
Quarter: 2019Q2

REPORT INFORMATION
  Report Type: Spontaneous
  Country: PL (occurrence: PL)
  Receive Date: 20190521
  Receipt Date: 20190625
  Transmission Date: 20190711
  Serious: Yes (Hospitalization, Other)
  Sender: FDA-Public Use
  Company Number: PL-009507513-1905POL005650

PATIENT
  Age: 54 Year
  Sex: Male

DRUGS (6)
  1. ZALDIAR [Concomitant]
     Active Substance: ACETAMINOPHEN\TRAMADOL HYDROCHLORIDE
  2. FUROSEMIDE. [Concomitant]
     Active Substance: FUROSEMIDE
  3. ATENOLOL. [Concomitant]
     Active Substance: ATENOLOL
  4. TRAMAL [Concomitant]
     Active Substance: TRAMADOL
  5. RIBAVIRIN. [Suspect]
     Active Substance: RIBAVIRIN
     Indication: HEPATITIS C
     Route: 065
  6. SOVALDI [Suspect]
     Active Substance: SOFOSBUVIR
     Indication: CHRONIC HEPATITIS C
     Route: 065

REACTIONS (4)
  - Gastric ulcer [Recovered/Resolved]
  - Oesophageal varices haemorrhage [Unknown]
  - Anaemia [Unknown]
  - Vocal cord paralysis [Unknown]
